FAERS Safety Report 12186090 (Version 6)
Quarter: 2017Q1

REPORT INFORMATION
  Report Type: Report from Study
  Country: US (occurrence: US)
  Receive Date: 20160317
  Receipt Date: 20170329
  Transmission Date: 20170428
  Serious: No
  Sender: FDA-Public Use
  Company Number: PHHY2015US044105

PATIENT
  Age: 22 Year
  Sex: Female

DRUGS (1)
  1. GILENYA [Suspect]
     Active Substance: FINGOLIMOD HYDROCHLORIDE
     Indication: MULTIPLE SCLEROSIS
     Dosage: UNK, QD
     Route: 048

REACTIONS (15)
  - Lymphocyte count decreased [Not Recovered/Not Resolved]
  - Gastroenteritis viral [Recovered/Resolved]
  - Ear infection [Recovered/Resolved]
  - Blood pressure increased [Recovered/Resolved]
  - Anxiety [Not Recovered/Not Resolved]
  - Migraine [Recovered/Resolved]
  - Palpitations [Recovered/Resolved]
  - Melanocytic naevus [Unknown]
  - Upper respiratory tract infection [Recovered/Resolved]
  - Blood pressure increased [Recovered/Resolved]
  - Syncope [Recovered/Resolved]
  - Neutrophil count decreased [Unknown]
  - Sinusitis [Recovered/Resolved]
  - Pharyngitis streptococcal [Recovered/Resolved]
  - Productive cough [Recovered/Resolved]

NARRATIVE: CASE EVENT DATE: 20150108
